FAERS Safety Report 10979069 (Version 2)
Quarter: 2015Q2

REPORT INFORMATION
  Report Type: Spontaneous
  Country: DE (occurrence: DE)
  Receive Date: 20150402
  Receipt Date: 20150508
  Transmission Date: 20150821
  Serious: Yes (Other)
  Sender: FDA-Public Use
  Company Number: DE-JNJFOC-20150316443

PATIENT
  Sex: Female

DRUGS (2)
  1. QUETIAPINE [Concomitant]
     Active Substance: QUETIAPINE
     Indication: PRODUCT USED FOR UNKNOWN INDICATION
     Route: 065
  2. XEPLION [Suspect]
     Active Substance: PALIPERIDONE PALMITATE
     Indication: SCHIZOPHRENIA, PARANOID TYPE
     Route: 030

REACTIONS (6)
  - Sciatica [Recovering/Resolving]
  - Injection site nodule [Recovered/Resolved]
  - C-reactive protein increased [Unknown]
  - Injection site induration [Recovered/Resolved]
  - Application site abscess [Unknown]
  - Injection site pain [Recovered/Resolved]
